FAERS Safety Report 9615123 (Version 2)
Quarter: 2013Q4

REPORT INFORMATION
  Report Type: Spontaneous
  Country: US (occurrence: US)
  Receive Date: 20131011
  Receipt Date: 20131011
  Transmission Date: 20140711
  Serious: No
  Sender: FDA-Public Use
  Company Number: US-PURDUE-USA-2013-0097475

PATIENT
  Sex: Female

DRUGS (4)
  1. BUTRANS [Suspect]
     Indication: PAIN
     Dosage: 10 MCG, UNK
     Route: 062
  2. BUTRANS [Suspect]
     Dosage: 20 MCG, UNK
     Route: 062
  3. BUTRANS [Suspect]
     Dosage: 10 MCG, UNK
     Route: 062
  4. NORCO [Concomitant]
     Indication: PAIN

REACTIONS (5)
  - Nausea [Recovered/Resolved]
  - Fatigue [Recovered/Resolved]
  - Dyspnoea [Recovered/Resolved]
  - Inadequate analgesia [Recovered/Resolved]
  - Pain [Recovered/Resolved]
